FAERS Safety Report 5444095-5 (Version None)
Quarter: 2007Q3

REPORT INFORMATION
  Report Type: 
  Country: None (occurrence: None)
  Receive Date: 20070831
  Receipt Date: 20070823
  Transmission Date: 20080115
  Serious: Yes (Hospitalization)
  Sender: FDA-Public Use
  Company Number: 2007SP011729

PATIENT
  Age: 49 Year
  Sex: Male
  Weight: 64 kg

DRUGS (4)
  1. PEG-INTRON [Suspect]
     Indication: HEPATITIS C
     Dosage: 120 MCG;QW;SC
     Route: 058
     Dates: start: 20060829, end: 20070605
  2. REBETOL [Suspect]
     Indication: HEPATITIS C
     Dosage: 800 MG;PO
     Route: 048
     Dates: start: 20060829, end: 20070605
  3. JUVELA [Concomitant]
  4. ZOLPIDEM [Concomitant]

REACTIONS (5)
  - ANOREXIA [None]
  - DIABETIC KETOACIDOSIS [None]
  - DIARRHOEA [None]
  - PANCREATITIS ACUTE [None]
  - VOMITING [None]
